FAERS Safety Report 21753579 (Version 1)
Quarter: 2022Q4

REPORT INFORMATION
  Report Type: Spontaneous
  Country: US (occurrence: None)
  Receive Date: 20221219
  Receipt Date: 20221219
  Transmission Date: 20230113
  Serious: Yes (Other)
  Sender: FDA-Public Use
  Company Number: None

PATIENT
  Age: 96 Year
  Sex: Female
  Weight: 66.6 kg

DRUGS (12)
  1. PAXLOVID [Suspect]
     Active Substance: NIRMATRELVIR\RITONAVIR
     Indication: COVID-19
  2. VYTORIN [Concomitant]
     Active Substance: EZETIMIBE\SIMVASTATIN
  3. RALOXIFENE [Concomitant]
     Active Substance: RALOXIFENE
  4. PLAVIX [Concomitant]
     Active Substance: CLOPIDOGREL BISULFATE
  5. CYMBALTA [Concomitant]
     Active Substance: DULOXETINE HYDROCHLORIDE
  6. DONEPEZIL [Concomitant]
     Active Substance: DONEPEZIL
  7. METOPROLOL [Concomitant]
     Active Substance: METOPROLOL
  8. ATROPINE [Concomitant]
     Active Substance: ATROPINE
  9. PRED FORTE [Concomitant]
     Active Substance: PREDNISOLONE ACETATE
  10. PANTOPRAZOLE [Concomitant]
     Active Substance: PANTOPRAZOLE
  11. MELATONIN [Concomitant]
     Active Substance: MELATONIN
  12. VITAMIN D [Concomitant]
     Active Substance: VITAMIN D NOS

REACTIONS (1)
  - Hallucination [None]

NARRATIVE: CASE EVENT DATE: 20221219
